FAERS Safety Report 17803159 (Version 1)
Quarter: 2020Q2

REPORT INFORMATION
  Report Type: Spontaneous
  Country: US (occurrence: US)
  Receive Date: 20200519
  Receipt Date: 20200519
  Transmission Date: 20200714
  Serious: Yes (Hospitalization, Other)
  Sender: FDA-Public Use
  Company Number: None

PATIENT
  Age: 56 Year
  Sex: Female
  Weight: 58.6 kg

DRUGS (1)
  1. AVYCAZ [Suspect]
     Active Substance: AVIBACTAM SODIUM\CEFTAZIDIME
     Indication: URINARY TRACT INFECTION
     Route: 040
     Dates: start: 20190909, end: 20190917

REACTIONS (3)
  - Encephalopathy [None]
  - Mental status changes [None]
  - Acute kidney injury [None]

NARRATIVE: CASE EVENT DATE: 20190913
